FAERS Safety Report 6716339-0 (Version None)
Quarter: 2010Q2

REPORT INFORMATION
  Report Type: 
  Country: None (occurrence: None)
  Receive Date: 20100507
  Receipt Date: 20100428
  Transmission Date: 20101027
  Serious: Yes (Hospitalization, Other)
  Sender: FDA-Public Use
  Company Number: US-ASTRAZENECA-2010SE19114

PATIENT
  Age: 83 Year
  Sex: Female
  Weight: 81.2 kg

DRUGS (10)
  1. NEXIUM [Suspect]
     Indication: GASTROOESOPHAGEAL REFLUX DISEASE
     Route: 048
     Dates: start: 20080101, end: 20100101
  2. NEXIUM [Suspect]
     Route: 048
     Dates: start: 20100101
  3. NAPROSYN [Concomitant]
  4. ZOCOR [Concomitant]
  5. ASPIRIN [Concomitant]
  6. LUTEIN [Concomitant]
  7. VITAMIN SUPPLEMENTS/CA [Concomitant]
  8. AREDS SUPPLIMENTS FOR EYE [Concomitant]
  9. TENORMIN [Concomitant]
  10. UNKNOWN HEART MEDICINE [Concomitant]

REACTIONS (5)
  - ABDOMINAL DISTENSION [None]
  - DRUG INEFFECTIVE [None]
  - FLATULENCE [None]
  - GASTROENTERITIS [None]
  - MACULAR DEGENERATION [None]
